FAERS Safety Report 5622651-9 (Version None)
Quarter: 2008Q1

REPORT INFORMATION
  Report Type: 
  Country: None (occurrence: None)
  Receive Date: 20080211
  Receipt Date: 20080211
  Transmission Date: 20080703
  Serious: Yes (Hospitalization, Disabling)
  Sender: FDA-Public Use
  Company Number: None

PATIENT
  Sex: Female
  Weight: 69.4003 kg

DRUGS (1)
  1. FOSAMAX PLUS D [Suspect]
     Indication: OSTEOPOROSIS PROPHYLAXIS
     Dosage: TAB 70/2800 ONCE WEEKLY 3 TO 4 YEARS

REACTIONS (3)
  - FEMUR FRACTURE [None]
  - HIP FRACTURE [None]
  - JOINT DISLOCATION [None]
